FAERS Safety Report 8667549 (Version 2)
Quarter: 2013Q4

REPORT INFORMATION
  Report Type: Spontaneous
  Country: ES (occurrence: ES)
  Receive Date: 20120829
  Receipt Date: 20131105
  Transmission Date: 20140711
  Serious: Yes (Hospitalization)
  Sender: FDA-Public Use
  Company Number: ES-009507513-1207ESP001365

PATIENT
  Age: 82 Year
  Sex: Male

DRUGS (6)
  1. JANUVIA [Suspect]
     Indication: TYPE 2 DIABETES MELLITUS
     Dosage: 100 MG, QD
     Route: 048
     Dates: start: 201201, end: 201201
  2. NOVO-NORM [Suspect]
     Indication: TYPE 2 DIABETES MELLITUS
     Dosage: 0.5 MG, BID
     Route: 048
     Dates: start: 201101, end: 201201
  3. GEMFIBROZIL [Suspect]
     Indication: DYSLIPIDAEMIA
     Dosage: 600 MG, BID
     Route: 048
     Dates: start: 201106, end: 201201
  4. NOVO-NORM [Interacting]
     Indication: TYPE 2 DIABETES MELLITUS
     Route: 048
     Dates: start: 201101, end: 201201
  5. GEMFIBROZIL [Interacting]
     Indication: DYSLIPIDAEMIA
     Route: 048
     Dates: start: 201106, end: 201201
  6. JANUVIA [Interacting]
     Indication: TYPE 2 DIABETES MELLITUS
     Route: 048
     Dates: start: 201201, end: 201201

REACTIONS (3)
  - Hypoglycaemia [Recovered/Resolved]
  - Drug interaction [Recovered/Resolved]
  - Hypoglycaemia [Recovered/Resolved]
